FAERS Safety Report 7528461-X (Version None)
Quarter: 2011Q2

REPORT INFORMATION
  Report Type: 
  Country: None (occurrence: None)
  Receive Date: 20110607
  Receipt Date: 20100810
  Transmission Date: 20111010
  Serious: No
  Sender: FDA-Public Use
  Company Number: US-ASTRAZENECA-2010SE38125

PATIENT
  Sex: Female

DRUGS (4)
  1. AVAPRO [Concomitant]
     Indication: BLOOD PRESSURE
     Dosage: UNKNOWN
  2. THYROID THERAPY [Concomitant]
     Dosage: UNKNOWN
  3. PRILOSEC OTC [Suspect]
     Route: 048
     Dates: start: 20100809
  4. AMBIEN [Concomitant]
     Indication: INSOMNIA
     Dosage: UNKNOWN

REACTIONS (3)
  - ERYTHEMA [None]
  - HYPERAESTHESIA [None]
  - RASH MACULAR [None]
